FAERS Safety Report 9436900 (Version 2)
Quarter: 2013Q3

REPORT INFORMATION
  Report Type: Spontaneous
  Country: US (occurrence: US)
  Receive Date: 20130802
  Receipt Date: 20130828
  Transmission Date: 20140515
  Serious: No
  Sender: FDA-Public Use
  Company Number: US-PFIZER INC-2013224749

PATIENT
  Age: 56 Year
  Sex: Female
  Weight: 68.48 kg

DRUGS (4)
  1. LYRICA [Suspect]
     Indication: MYALGIA
     Dosage: 100 MG, 3X/DAY
     Dates: start: 201306
  2. OXYCONTIN [Concomitant]
     Dosage: 80 MG, 3X/DAY
  3. FLECTOR [Concomitant]
     Dosage: UNK, 2X/DAY
  4. VOLTAREN [Concomitant]
     Dosage: UNK

REACTIONS (4)
  - Pre-existing condition improved [Unknown]
  - Therapeutic response unexpected [Unknown]
  - Abdominal pain upper [Unknown]
  - Gastrointestinal disorder [Unknown]
